FAERS Safety Report 15636587 (Version 15)
Quarter: 2019Q2

REPORT INFORMATION
  Report Type: Report from Study
  Country: None (occurrence: IE)
  Receive Date: 20181120
  Receipt Date: 20190408
  Transmission Date: 20190711
  Serious: Yes (Hospitalization, Other)
  Sender: FDA-Public Use
  Company Number: IE-ABBVIE-18S-229-2556361-00

PATIENT
  Age: 70 Year
  Sex: Male

DRUGS (30)
  1. ELTROXIN [Concomitant]
     Active Substance: LEVOTHYROXINE
     Indication: PRODUCT USED FOR UNKNOWN INDICATION
     Route: 065
  2. STALEVO [Concomitant]
     Active Substance: CARBIDOPA\ENTACAPONE\LEVODOPA
     Indication: PRODUCT USED FOR UNKNOWN INDICATION
     Dosage: 50/12.5/200MG
     Route: 065
  3. STALEVO [Concomitant]
     Active Substance: CARBIDOPA\ENTACAPONE\LEVODOPA
     Dosage: 150/37.5/200 @ 6AM
     Route: 065
  4. DUODOPA [Suspect]
     Active Substance: CARBIDOPA\LEVODOPA
     Dosage: 1 CASSETTE, CD 2.0 MLS/HOUR
     Route: 050
     Dates: start: 20181111, end: 20181119
  5. DUODOPA [Suspect]
     Active Substance: CARBIDOPA\LEVODOPA
     Route: 050
     Dates: start: 20181121, end: 201811
  6. DUODOPA [Suspect]
     Active Substance: CARBIDOPA\LEVODOPA
     Dosage: 1 CASSETTE CD INCREASED TO 2.8MLS/HOUR
     Route: 050
     Dates: start: 20181206
  7. SINEMET CR [Concomitant]
     Active Substance: CARBIDOPA\LEVODOPA
     Indication: PRODUCT USED FOR UNKNOWN INDICATION
     Dosage: DOSE INCREASED?NIGHT
     Route: 048
  8. DUODOPA [Suspect]
     Active Substance: CARBIDOPA\LEVODOPA
     Dosage: 1 CASSETTE CD INCREASED TO 2.5MLS/HOUR
     Route: 050
     Dates: start: 20181204, end: 20181206
  9. DUODOPA [Suspect]
     Active Substance: CARBIDOPA\LEVODOPA
     Dosage: CONTINUOUS DOSE: 2.9MLS/HOUR
     Route: 050
     Dates: start: 20190301
  10. NEUPRO [Concomitant]
     Active Substance: ROTIGOTINE
     Indication: PRODUCT USED FOR UNKNOWN INDICATION
     Dates: start: 20181205
  11. DUODOPA [Suspect]
     Active Substance: CARBIDOPA\LEVODOPA
     Dosage: CR INCREASED TO 2.4ML/HR?ED INCREASED TO 1.2ML
     Route: 050
     Dates: start: 20181119, end: 20181119
  12. SINEMET [Concomitant]
     Active Substance: CARBIDOPA\LEVODOPA
     Route: 065
     Dates: start: 201811
  13. NEUPRO [Concomitant]
     Active Substance: ROTIGOTINE
     Dosage: NEURO PATCH DOSE INCREASED
     Dates: start: 20190103
  14. DUODOPA [Suspect]
     Active Substance: CARBIDOPA\LEVODOPA
     Indication: PARKINSON^S DISEASE
     Route: 050
     Dates: end: 201809
  15. SCOPODERM [Concomitant]
     Active Substance: SCOPOLAMINE
     Indication: SECRETION DISCHARGE
     Dosage: PATCH
     Route: 065
     Dates: start: 201811
  16. ESOMEPRAZOLE. [Concomitant]
     Active Substance: ESOMEPRAZOLE MAGNESIUM
     Indication: PRODUCT USED FOR UNKNOWN INDICATION
     Route: 042
  17. DUODOPA [Suspect]
     Active Substance: CARBIDOPA\LEVODOPA
     Dosage: ED - 2.0 MLS
     Route: 050
     Dates: start: 201811, end: 2018
  18. DUODOPA [Suspect]
     Active Substance: CARBIDOPA\LEVODOPA
     Route: 050
     Dates: start: 20190107
  19. DUODOPA [Suspect]
     Active Substance: CARBIDOPA\LEVODOPA
     Dosage: CONTINUOUS DOSE: 2.8MLS/HOUR
     Route: 050
     Dates: start: 20190115, end: 20190301
  20. DUODOPA [Suspect]
     Active Substance: CARBIDOPA\LEVODOPA
     Route: 050
  21. ESCITALOPRAM [Concomitant]
     Active Substance: ESCITALOPRAM OXALATE
     Indication: PRODUCT USED FOR UNKNOWN INDICATION
     Route: 048
  22. VALSARTAN. [Concomitant]
     Active Substance: VALSARTAN
     Indication: PRODUCT USED FOR UNKNOWN INDICATION
     Route: 048
  23. DUODOPA [Suspect]
     Active Substance: CARBIDOPA\LEVODOPA
     Dosage: 1 CASSETTE CD 2.2MLS/HOUR
     Route: 050
     Dates: start: 2018, end: 20181204
  24. ESOMEPRAZOLE. [Concomitant]
     Active Substance: ESOMEPRAZOLE MAGNESIUM
     Route: 048
  25. DUODOPA [Suspect]
     Active Substance: CARBIDOPA\LEVODOPA
     Dosage: 1 CASSETTE
     Route: 050
     Dates: start: 20181106, end: 20181109
  26. DUODOPA [Suspect]
     Active Substance: CARBIDOPA\LEVODOPA
     Dosage: 1 CASSETTE, CD 1.8MLS/HOUR
     Route: 050
     Dates: start: 20181109, end: 20181111
  27. CLONAZEPAM. [Concomitant]
     Active Substance: CLONAZEPAM
     Indication: PRODUCT USED FOR UNKNOWN INDICATION
     Route: 065
  28. FOLIC ACID. [Concomitant]
     Active Substance: FOLIC ACID
     Indication: PRODUCT USED FOR UNKNOWN INDICATION
     Route: 048
  29. SINEMET [Concomitant]
     Active Substance: CARBIDOPA\LEVODOPA
     Indication: SECRETION DISCHARGE
     Dosage: 100/50MG NOCTE, MORNING
     Route: 065
  30. SINEMET PLUS [Concomitant]
     Active Substance: CARBIDOPA\LEVODOPA
     Indication: PRODUCT USED FOR UNKNOWN INDICATION
     Dosage: NIGHT
     Route: 048

REACTIONS (41)
  - Hip fracture [Recovering/Resolving]
  - Haematochezia [Recovering/Resolving]
  - Secretion discharge [Recovering/Resolving]
  - Dysphagia [Recovering/Resolving]
  - Gait disturbance [Recovering/Resolving]
  - Somnolence [Recovering/Resolving]
  - Freezing phenomenon [Recovering/Resolving]
  - Bradykinesia [Recovering/Resolving]
  - Anal incontinence [Recovering/Resolving]
  - Speech disorder [Recovering/Resolving]
  - Incorrect route of product administration [Not Recovered/Not Resolved]
  - Agitation [Recovered/Resolved]
  - Dyskinesia [Recovering/Resolving]
  - Therapeutic product effect incomplete [Not Recovered/Not Resolved]
  - Nocturia [Not Recovered/Not Resolved]
  - Intestinal dilatation [Recovering/Resolving]
  - Mobility decreased [Recovering/Resolving]
  - General physical health deterioration [Recovering/Resolving]
  - Dyskinesia [Recovered/Resolved]
  - Drug ineffective [Recovering/Resolving]
  - Feeling abnormal [Not Recovered/Not Resolved]
  - Abdominal distension [Recovering/Resolving]
  - Fall [Recovering/Resolving]
  - On and off phenomenon [Recovering/Resolving]
  - Constipation [Recovering/Resolving]
  - Dystonia [Not Recovered/Not Resolved]
  - Respiratory tract infection [Recovering/Resolving]
  - Haematemesis [Recovering/Resolving]
  - Staring [Recovering/Resolving]
  - Headache [Recovering/Resolving]
  - Constipation [Recovered/Resolved]
  - Musculoskeletal stiffness [Not Recovered/Not Resolved]
  - Pneumonia aspiration [Recovering/Resolving]
  - Device occlusion [Recovered/Resolved]
  - Muscle spasms [Not Recovered/Not Resolved]
  - Agitation [Recovering/Resolving]
  - On and off phenomenon [Recovered/Resolved]
  - Oxygen saturation decreased [Recovering/Resolving]
  - Poor quality sleep [Not Recovered/Not Resolved]
  - Tremor [Recovering/Resolving]
  - Confusional state [Recovering/Resolving]

NARRATIVE: CASE EVENT DATE: 2018
